FAERS Safety Report 6382793-X (Version None)
Quarter: 2009Q3

REPORT INFORMATION
  Report Type: 
  Country: None (occurrence: None)
  Receive Date: 20090928
  Receipt Date: 20090928
  Transmission Date: 20100115
  Serious: Yes (Other)
  Sender: FDA-Public Use
  Company Number: None

PATIENT
  Age: 59 Year
  Sex: Female
  Weight: 68.0396 kg

DRUGS (2)
  1. VOLTAREN [Suspect]
     Indication: ARTHRALGIA
     Dosage: 4G IN DOSING CARD - I USED 2G- 1 TIME DAILY LAST WEEK OF AUGUST
     Dates: start: 20090801
  2. KEFLEX [Suspect]
     Indication: PHARYNGITIS
     Dosage: ONE CAPSULE 3 TIMES DAILY
     Dates: start: 20090814, end: 20090821

REACTIONS (4)
  - BACK PAIN [None]
  - CHEST PAIN [None]
  - MUSCULOSKELETAL PAIN [None]
  - MYOCARDIAL INFARCTION [None]
